FAERS Safety Report 9398357 (Version 2)
Quarter: 2013Q3

REPORT INFORMATION
  Report Type: Spontaneous
  Country: BR (occurrence: BR)
  Receive Date: 20130712
  Receipt Date: 20130716
  Transmission Date: 20140515
  Serious: Yes (Other)
  Sender: FDA-Public Use
  Company Number: BR-ABBOTT-13P-020-1116359-00

PATIENT
  Age: 32 Year
  Sex: Female
  Weight: 70 kg

DRUGS (7)
  1. HUMIRA [Suspect]
     Indication: RHEUMATOID ARTHRITIS
     Route: 058
     Dates: start: 20080701, end: 20130614
  2. MATERNA [Concomitant]
     Indication: VITAMIN SUPPLEMENTATION
     Dosage: SUPPOSED TO BE TAKEN UNTIL PREGNANCY END
     Route: 048
     Dates: start: 20130704
  3. FOLIC ACID [Concomitant]
     Indication: FOETAL MALFORMATION
     Dosage: SUPPOSED TO BE TAKEN UNTIL PREGNANCY END
     Route: 048
     Dates: start: 20130704
  4. FOLIC ACID [Concomitant]
     Indication: PROPHYLAXIS
  5. OMEGA 3 [Concomitant]
     Indication: ROUTINE HEALTH MAINTENANCE
     Dosage: SUPPOSED TO BE TAKEN UNTIL PREGNANCY END
     Route: 048
     Dates: start: 20130704
  6. PARACETAMOL [Concomitant]
     Indication: PAIN
     Dosage: SUPPOSED TO BE TAKEN UNTIL PREGNANCY END
     Route: 048
     Dates: start: 20130704
  7. UTROGESTAN [Concomitant]
     Indication: PREGNANCY
     Dosage: SUPPOSED TO BE TAKEN FOR THREE MONTHS
     Route: 067
     Dates: start: 20130704

REACTIONS (3)
  - Adenomyosis [Recovered/Resolved]
  - Endometriosis [Not Recovered/Not Resolved]
  - Gastrointestinal pain [Not Recovered/Not Resolved]
